FAERS Safety Report 20937176 (Version 2)
Quarter: 2023Q2

REPORT INFORMATION
  Report Type: Report from Study
  Country: ES (occurrence: None)
  Receive Date: 20220609
  Receipt Date: 20230531
  Transmission Date: 20230722
  Serious: Yes (Death)
  Sender: FDA-Public Use
  Company Number: ES-ROCHE-3108769

PATIENT
  Age: 77 Year
  Sex: Male
  Weight: 64.7 kg

DRUGS (3)
  1. ATEZOLIZUMAB [Suspect]
     Active Substance: ATEZOLIZUMAB
     Indication: Transitional cell carcinoma metastatic
     Dosage: ON 14/FEB/2022 , HE WAS MOST RECENT DOSE (1200MG) OF ATEZOLIZUMAB
     Route: 041
     Dates: start: 20210802
  2. CISPLATIN [Suspect]
     Active Substance: CISPLATIN
     Indication: Transitional cell carcinoma metastatic
     Dosage: 21/DEC/2021,  HE WAS MOST RECENT DOSE (35 MG/M2) OF CISPLATIN. ON SPLIT-DOSE SCHEDULE OF 35 MG/M2 ON
     Route: 042
     Dates: start: 20210802
  3. GEMCITABINE [Suspect]
     Active Substance: GEMCITABINE
     Indication: Transitional cell carcinoma metastatic
     Dosage: 21/DEC/2021,  HE WAS MOST RECENT DOSE (750 MG/M2) OF GEMCITABINE. ON D1 AND 1000 MG/M2 IV ON D8 OF E
     Route: 042
     Dates: start: 20210802

REACTIONS (1)
  - Disease progression [Fatal]

NARRATIVE: CASE EVENT DATE: 20220507
